FAERS Safety Report 8083068 (Version 5)
Quarter: 2014Q2

REPORT INFORMATION
  Report Type: Report from Study
  Country: CN (occurrence: CN)
  Receive Date: 20110809
  Receipt Date: 20140417
  Transmission Date: 20141212
  Serious: Yes (Hospitalization)
  Sender: FDA-Public Use
  Company Number: CN-GILEAD-2011-0042433

PATIENT
  Age: 51 Year
  Sex: Male

DRUGS (4)
  1. ADEFOVIR DIPIVOXIL [Suspect]
     Indication: CHRONIC HEPATITIS B
     Dosage: 10 MG, QD
     Route: 048
     Dates: start: 20080320, end: 20110701
  2. LAMIVUDINE [Concomitant]
     Indication: CHRONIC HEPATITIS B
     Dosage: UNK
     Route: 065
     Dates: start: 20110704, end: 20110812
  3. ENTECAVIR [Concomitant]
     Indication: CHRONIC HEPATITIS B
     Dosage: UNK
     Route: 065
     Dates: start: 20110812, end: 20110907
  4. ENTECAVIR [Concomitant]
     Dosage: 0.5 MG, QD
     Route: 065
     Dates: start: 20111021

REACTIONS (1)
  - Blood creatine phosphokinase increased [Recovered/Resolved]
